FAERS Safety Report 20775953 (Version 1)
Quarter: 2022Q2

REPORT INFORMATION
  Report Type: Report from Study
  Country: AR (occurrence: AR)
  Receive Date: 20220502
  Receipt Date: 20220502
  Transmission Date: 20220721
  Serious: Yes (Hospitalization, Other)
  Sender: FDA-Public Use
  Company Number: AR-BRISTOL-MYERS SQUIBB COMPANY-2022-024830

PATIENT
  Age: 66 Year
  Sex: Female
  Weight: 52 kg

DRUGS (2)
  1. OPDIVO [Suspect]
     Active Substance: NIVOLUMAB
     Indication: Renal cancer
     Route: 042
     Dates: start: 20190604, end: 202108
  2. COVID-19 VACCINE [Concomitant]
     Indication: COVID-19

REACTIONS (12)
  - Colitis [Not Recovered/Not Resolved]
  - COVID-19 [Not Recovered/Not Resolved]
  - Osteoarthritis [Not Recovered/Not Resolved]
  - Polymyalgia rheumatica [Not Recovered/Not Resolved]
  - Irritable bowel syndrome [Unknown]
  - Dry eye [Unknown]
  - Dry mouth [Unknown]
  - Nasal dryness [Unknown]
  - Swelling face [Unknown]
  - Thyroxine free increased [Unknown]
  - Blood thyroid stimulating hormone increased [Unknown]
  - Pulmonary mass [Unknown]

NARRATIVE: CASE EVENT DATE: 20210501
